FAERS Safety Report 9072302 (Version 1)
Quarter: 2013Q1

REPORT INFORMATION
  Report Type: Report from Study
  Country: US (occurrence: US)
  Receive Date: 20130129
  Receipt Date: 20130129
  Transmission Date: 20140127
  Serious: No
  Sender: FDA-Public Use
  Company Number: US-ABBOTT-12P-163-0924010-00

PATIENT
  Sex: Female

DRUGS (6)
  1. HUMIRA 40 MG/0.8 ML PEN [Suspect]
     Indication: CROHN^S DISEASE
     Dates: start: 2010, end: 2011
  2. HUMIRA 40 MG/0.8 ML PEN [Suspect]
     Dates: start: 2011
  3. LIALDA [Concomitant]
     Indication: CROHN^S DISEASE
  4. UNKNOWN ANTI-DEPRESSANT [Concomitant]
     Indication: DEPRESSION
  5. SYNTHROID [Concomitant]
     Indication: HYPOTHYROIDISM
  6. IRON [Concomitant]
     Indication: BLOOD IRON DECREASED

REACTIONS (2)
  - Night sweats [Recovered/Resolved]
  - Chest pain [Not Recovered/Not Resolved]
